FAERS Safety Report 12550033 (Version 1)
Quarter: 2016Q3

REPORT INFORMATION
  Report Type: Spontaneous
  Country: US (occurrence: US)
  Receive Date: 20160712
  Receipt Date: 20160712
  Transmission Date: 20161109
  Serious: No
  Sender: FDA-Public Use
  Company Number: US-APOTEX-2016AP007265

PATIENT
  Sex: Female

DRUGS (1)
  1. CLOPIDOGREL [Suspect]
     Active Substance: CLOPIDOGREL BISULFATE
     Indication: INTRACRANIAL ANEURYSM
     Dosage: 75 MG, DAILY
     Route: 048

REACTIONS (3)
  - Product substitution issue [Recovered/Resolved]
  - Blood blister [Recovered/Resolved]
  - Epistaxis [Recovered/Resolved]
